FAERS Safety Report 6305792-2 (Version None)
Quarter: 2009Q3

REPORT INFORMATION
  Report Type: 
  Country: None (occurrence: None)
  Receive Date: 20090806
  Receipt Date: 20090327
  Transmission Date: 20100115
  Serious: Yes (Hospitalization)
  Sender: FDA-Public Use
  Company Number: 1-17935817

PATIENT
  Age: 47 Year
  Sex: Female
  Weight: 109.3169 kg

DRUGS (6)
  1. BACTRIM DS [Suspect]
     Dosage: ORAL
     Route: 048
  2. MARAVIROC [Suspect]
  3. LISINOPRIL WITH HYDROCHLOROTHIAZIDE [Concomitant]
  4. FERROUS SULFATE TAB [Concomitant]
  5. EVOTHYROXINE [Concomitant]
  6. MULTI-VITAMINS [Concomitant]

REACTIONS (1)
  - RENAL FAILURE ACUTE [None]
